FAERS Safety Report 19758969 (Version 1)
Quarter: 2021Q3

REPORT INFORMATION
  Report Type: Spontaneous
  Country: US (occurrence: US)
  Receive Date: 20210829
  Receipt Date: 20210829
  Transmission Date: 20211014
  Serious: Yes (Hospitalization)
  Sender: FDA-Public Use
  Company Number: NVSC2021US192301

PATIENT
  Age: 54 Year
  Sex: Male

DRUGS (4)
  1. RANITIDINE. [Suspect]
     Active Substance: RANITIDINE
     Indication: DYSPEPSIA
     Dosage: 150 MG, UNKNOWN
     Route: 048
     Dates: end: 201912
  2. RANITIDINE. [Suspect]
     Active Substance: RANITIDINE
     Indication: DYSPEPSIA
     Dosage: 150 MG, UNKNOWN
     Route: 048
     Dates: end: 201912
  3. RANITIDINE. [Suspect]
     Active Substance: RANITIDINE
     Indication: ULCER
  4. RANITIDINE. [Suspect]
     Active Substance: RANITIDINE
     Indication: ULCER

REACTIONS (2)
  - Squamous cell carcinoma of skin [Unknown]
  - Colorectal cancer [Unknown]

NARRATIVE: CASE EVENT DATE: 20200331
